FAERS Safety Report 14346688 (Version 1)
Quarter: 2018Q1

REPORT INFORMATION
  Report Type: Spontaneous
  Country: US (occurrence: US)
  Receive Date: 20180103
  Receipt Date: 20180103
  Transmission Date: 20180509
  Serious: No
  Sender: FDA-Public Use
  Company Number: US-TEVA-2017-US-839881

PATIENT
  Age: 49 Year
  Sex: Female
  Weight: 89.8 kg

DRUGS (1)
  1. FEXOFENADINE [Suspect]
     Active Substance: FEXOFENADINE\FEXOFENADINE HYDROCHLORIDE
     Indication: SEASONAL ALLERGY
     Dosage: 360 MILLIGRAM DAILY;
     Route: 048
     Dates: start: 20171214, end: 20171214

REACTIONS (3)
  - Thirst [Recovered/Resolved]
  - Extra dose administered [Unknown]
  - Wrong drug administered [Unknown]
